FAERS Safety Report 4524134-6 (Version None)
Quarter: 2004Q4

REPORT INFORMATION
  Report Type: 
  Country: None (occurrence: None)
  Receive Date: 20041209
  Receipt Date: 20041129
  Transmission Date: 20050328
  Serious: Yes (Hospitalization)
  Sender: FDA-Public Use
  Company Number: 2004CG01693

PATIENT
  Age: 61 Year
  Sex: Male
  Weight: 76 kg

DRUGS (5)
  1. MOPRAL [Suspect]
     Dosage: 20 MG DAILY PO
     Route: 048
     Dates: start: 20020715
  2. THALIDOMIDE [Suspect]
     Indication: MULTIPLE MYELOMA
     Dosage: 300 MG DAILY PO
     Route: 048
     Dates: start: 20031015, end: 20040713
  3. DI-ANTALVIC [Suspect]
     Indication: MULTIPLE MYELOMA
     Dosage: 6 DF DAILY PO
     Route: 048
     Dates: start: 20020715
  4. ZOMETA [Suspect]
     Indication: MULTIPLE MYELOMA
     Dosage: 4 MG MONTH IV
     Route: 042
     Dates: start: 20031015
  5. OROCAL D (3) [Suspect]
     Indication: MULTIPLE MYELOMA
     Dosage: 1 DF DAILY PO
     Route: 048
     Dates: start: 20031015

REACTIONS (4)
  - HYPOAESTHESIA [None]
  - NEUROTOXICITY [None]
  - PARAESTHESIA [None]
  - TREMOR [None]
